FAERS Safety Report 16859441 (Version 4)
Quarter: 2020Q2

REPORT INFORMATION
  Report Type: Report from Study
  Country: MX (occurrence: MX)
  Receive Date: 20190927
  Receipt Date: 20200408
  Transmission Date: 20200713
  Serious: Yes (Death, Hospitalization, Other)
  Sender: FDA-Public Use
  Company Number: MX-SA-2019SA057994

PATIENT
  Age: 69 Year
  Sex: Male

DRUGS (1)
  1. ALEMTUZUMAB [Suspect]
     Active Substance: ALEMTUZUMAB
     Indication: MULTIPLE SCLEROSIS
     Dosage: UNK UNK, UNK
     Route: 041
     Dates: start: 20190119

REACTIONS (17)
  - Death [Fatal]
  - Lymphocyte percentage decreased [Unknown]
  - Haematuria [Unknown]
  - Red blood cell count increased [Unknown]
  - Mean cell haemoglobin concentration decreased [Unknown]
  - Eosinophil percentage decreased [Unknown]
  - Platelet count decreased [Not Recovered/Not Resolved]
  - Bradycardia [Unknown]
  - Hypotension [Recovered/Resolved]
  - Urine leukocyte esterase positive [Unknown]
  - Neutrophil percentage increased [Unknown]
  - Haematocrit increased [Unknown]
  - Nephropathy [Unknown]
  - Proteinuria [Unknown]
  - Red cell distribution width increased [Not Recovered/Not Resolved]
  - Lymphocyte count decreased [Unknown]
  - Mean platelet volume decreased [Not Recovered/Not Resolved]

NARRATIVE: CASE EVENT DATE: 20190119
